FAERS Safety Report 19193884 (Version 1)
Quarter: 2021Q2

REPORT INFORMATION
  Report Type: Spontaneous
  Country: US (occurrence: US)
  Receive Date: 20210427
  Receipt Date: 20210427
  Transmission Date: 20210717
  Serious: No
  Sender: FDA-Public Use
  Company Number: None

PATIENT
  Sex: Male

DRUGS (1)
  1. AUSTRALIAN DREAM (HISTAMINE DIHYDROCHLORIDE) [Suspect]
     Active Substance: HISTAMINE DIHYDROCHLORIDE
     Dates: start: 20210215, end: 20210219

REACTIONS (2)
  - Headache [None]
  - Rash [None]

NARRATIVE: CASE EVENT DATE: 20210217
